FAERS Safety Report 24692098 (Version 1)
Quarter: 2024Q4

REPORT INFORMATION
  Report Type: Spontaneous
  Country: GB (occurrence: GB)
  Receive Date: 20241203
  Receipt Date: 20241203
  Transmission Date: 20250115
  Serious: Yes (Other)
  Sender: TEVA
  Company Number: None

PATIENT
  Age: 92 Year
  Sex: Male
  Weight: 57 kg

DRUGS (17)
  1. GABAPENTIN [Suspect]
     Active Substance: GABAPENTIN
     Indication: Product used for unknown indication
     Dosage: TAKE ONE CAPSULE ONCE DAILY ON DAY 1, THEN ONE CAPSULE TWICE DAILY ON DAY 2, THEN ONE CAPSULE THR...
     Route: 048
     Dates: start: 20241022, end: 20241114
  2. MINERAL OIL\PARAFFIN [Concomitant]
     Active Substance: MINERAL OIL\PARAFFIN
     Indication: Ill-defined disorder
     Dosage: USE TO MOISTURISE WITH DAILY
     Dates: start: 20240828
  3. BETACAP [Concomitant]
     Indication: Ill-defined disorder
     Dosage: APPLY ONCE DAILY; DURATION: 8 DAYS:
     Dates: start: 20241014, end: 20241021
  4. CETIRIZINE [Concomitant]
     Active Substance: CETIRIZINE HYDROCHLORIDE
     Indication: Ill-defined disorder
     Dosage: DAILY DOSE: 1 DOSAGE FORM
     Dates: start: 20241115
  5. ACYCLOVIR [Concomitant]
     Active Substance: ACYCLOVIR
     Indication: Ill-defined disorder
     Dosage: DAILY DOSE: 5 DOSAGE FORM
     Dates: start: 20241029, end: 20241105
  6. MENTHOL [Concomitant]
     Active Substance: MENTHOL
     Indication: Ill-defined disorder
     Dosage: APPLY AS NEEDED; DURATION: 29 DAYS
     Dates: start: 20240828, end: 20240925
  7. SIMVASTATIN [Concomitant]
     Active Substance: SIMVASTATIN
     Indication: Ill-defined disorder
     Dosage: TAKE ONE AT NIGHT INSTEAD OF ATORVASTATIN FOR C...
     Dates: start: 20240710
  8. LOSARTAN [Concomitant]
     Active Substance: LOSARTAN
     Indication: Ill-defined disorder
     Dosage: DAILY DOSE: 1 DOSAGE FORM
     Dates: start: 20240710
  9. PREGABALIN [Concomitant]
     Active Substance: PREGABALIN
     Indication: Ill-defined disorder
     Dosage: DAILY DOSE: 2 DOSAGE FORM
     Dates: start: 20241115
  10. COAL TAR\COCONUT OIL\SALICYLIC ACID [Concomitant]
     Active Substance: COAL TAR\COCONUT OIL\SALICYLIC ACID
     Indication: Ill-defined disorder
     Dosage: USE TO WASH HAIR; DURATION: 15 DAYS
     Dates: start: 20240828, end: 20240911
  11. FEXOFENADINE [Concomitant]
     Active Substance: FEXOFENADINE HYDROCHLORIDE
     Indication: Ill-defined disorder
     Dosage: TAKE ONE DAILY
     Dates: start: 20240918, end: 20241018
  12. PREDNISOLONE [Concomitant]
     Active Substance: PREDNISOLONE
     Indication: Ill-defined disorder
     Dosage: TAKE SIX TABLETS AS A SINGLE DOSE ONCE DAILY IN...
     Dates: start: 20241115
  13. APIXABAN [Concomitant]
     Active Substance: APIXABAN
     Indication: Ill-defined disorder
     Dosage: ONE TO BE TAKEN TWICE DAILY TO THIN BLOOD
     Dates: start: 20240710
  14. BISOPROLOL [Concomitant]
     Active Substance: BISOPROLOL
     Indication: Ill-defined disorder
     Dosage: TAKE ONE DAILY
     Dates: start: 20240710
  15. EYEAZE [Concomitant]
     Indication: Ill-defined disorder
     Dosage: ONE DROP IN TO THE AFFECTED EYE(S) TWO TO FOUR ...
     Dates: start: 20240828
  16. KETOCONAZOLE [Concomitant]
     Active Substance: KETOCONAZOLE
     Indication: Ill-defined disorder
     Dosage: USE TWICE WEEKLY WHEN WASHING HAIR, LEAVE ON FO...; DURATION: 29 DAYS
     Dates: start: 20240927, end: 20241025
  17. BIMATOPROST\TIMOLOL [Concomitant]
     Active Substance: BIMATOPROST\TIMOLOL
     Indication: Ill-defined disorder
     Dosage: ONE DROP ONCE DAILY TO BOTH EYES
     Dates: start: 20240710

REACTIONS (1)
  - Dermatitis allergic [Recovering/Resolving]

NARRATIVE: CASE EVENT DATE: 20241104
